FAERS Safety Report 20227572 (Version 3)
Quarter: 2022Q1

REPORT INFORMATION
  Report Type: Report from Study
  Country: CR (occurrence: CR)
  Receive Date: 20211224
  Receipt Date: 20220218
  Transmission Date: 20220424
  Serious: Yes (Other)
  Sender: FDA-Public Use
  Company Number: CR-NOVARTISPH-NVSC2021CR292485

PATIENT
  Age: 49 Year
  Sex: Female
  Weight: 72 kg

DRUGS (2)
  1. GILENYA [Suspect]
     Active Substance: FINGOLIMOD HYDROCHLORIDE
     Indication: Relapsing-remitting multiple sclerosis
     Dosage: 0.5 MG
     Route: 048
     Dates: start: 202109
  2. GILENYA [Suspect]
     Active Substance: FINGOLIMOD HYDROCHLORIDE
     Dosage: 0.5 MG, QD
     Route: 048
     Dates: start: 20211014

REACTIONS (5)
  - Deafness [Unknown]
  - Fear [Unknown]
  - Feeling abnormal [Unknown]
  - Hypertension [Unknown]
  - Cough [Unknown]

NARRATIVE: CASE EVENT DATE: 20210901
